FAERS Safety Report 7046843-X (Version None)
Quarter: 2010Q4

REPORT INFORMATION
  Report Type: 
  Country: None (occurrence: None)
  Receive Date: 20101015
  Receipt Date: 20101006
  Transmission Date: 20110411
  Serious: Yes (Other)
  Sender: FDA-Public Use
  Company Number: US-JNJFOC-20101000284

PATIENT
  Sex: Male
  Weight: 77.27 kg

DRUGS (5)
  1. USTEKINUMAB [Suspect]
     Indication: PSORIASIS
     Route: 058
  2. USTEKINUMAB [Suspect]
     Route: 058
  3. IBUPROFEN [Concomitant]
  4. TRIAMCINOLONE ACETONIDE [Concomitant]
     Indication: PSORIASIS
  5. CLINDAMYCIN [Concomitant]
     Route: 061

REACTIONS (1)
  - HIV TEST POSITIVE [None]
